FAERS Safety Report 7340702-0 (Version None)
Quarter: 2011Q1

REPORT INFORMATION
  Report Type: 
  Country: None (occurrence: None)
  Receive Date: 20110309
  Receipt Date: 20110218
  Transmission Date: 20110831
  Serious: Yes (Hospitalization)
  Sender: FDA-Public Use
  Company Number: FR-PFIZER INC-FR-WYE-G03820109

PATIENT
  Age: 56 Year
  Sex: Male

DRUGS (15)
  1. NOVATREX [Suspect]
     Indication: PSORIATIC ARTHROPATHY
     Dosage: 15 MG, 1X/WK
     Route: 048
     Dates: start: 20050101, end: 20080918
  2. TAZOCILLINE [Suspect]
     Indication: ANTIBIOTIC PROPHYLAXIS
     Dosage: 4 G, 4X/DAY
     Route: 042
     Dates: start: 20090407, end: 20090428
  3. ZAVEDOS [Suspect]
     Indication: ACUTE PROMYELOCYTIC LEUKAEMIA
     Dosage: 22.4 MG, ALTERNATE DAY
     Route: 042
     Dates: start: 20090324, end: 20090328
  4. VESANOID [Suspect]
     Dosage: 80 MG, 1X/DAY
     Route: 048
     Dates: start: 20090324, end: 20090407
  5. COVERSYL [Suspect]
     Dosage: UNK
     Route: 048
     Dates: start: 20090515
  6. PARAFFIN SOFT [Suspect]
     Indication: PSORIASIS
     Dosage: UNK
     Route: 003
     Dates: start: 20090417, end: 20090428
  7. NOVATREX [Suspect]
     Dosage: 20 MG TOTAL WEEKLY
     Route: 048
     Dates: start: 20080919, end: 20090122
  8. LANZOR [Suspect]
     Indication: GASTRITIS PROPHYLAXIS
     Dosage: 3 CAPSULES TOTAL DAILY
     Route: 048
     Dates: start: 20080101, end: 20090428
  9. LANZOR [Suspect]
     Dosage: 1 DF, 1X/DAY
     Route: 042
     Dates: start: 20090101, end: 20090101
  10. VESANOID [Suspect]
     Indication: ACUTE PROMYELOCYTIC LEUKAEMIA
     Dosage: 90 MG, 1X/DAY
     Route: 048
     Dates: start: 20090204, end: 20090305
  11. SALICYLIC ACID [Suspect]
     Indication: PSORIASIS
     Dosage: UNK
     Route: 003
     Dates: start: 20090417, end: 20090428
  12. ASPEGIC 325 [Suspect]
     Indication: CORONARY ARTERIAL STENT INSERTION
     Dosage: 100 MG, 1X/DAY
     Route: 048
     Dates: start: 20090101
  13. TAHOR [Suspect]
     Dosage: 40 MG, 1X/DAY
     Route: 048
     Dates: end: 20090428
  14. COVERSYL [Suspect]
     Dosage: 2 MG, 1X/DAY
     Route: 048
     Dates: end: 20090415
  15. TAHOR [Suspect]
     Dosage: UNK
     Route: 048
     Dates: start: 20090515

REACTIONS (4)
  - BONE MARROW TOXICITY [None]
  - CONDITION AGGRAVATED [None]
  - FEBRILE BONE MARROW APLASIA [None]
  - PSORIASIS [None]
